FAERS Safety Report 15129997 (Version 1)
Quarter: 2018Q3

REPORT INFORMATION
  Report Type: Report from Study
  Country: TR (occurrence: TR)
  Receive Date: 20180711
  Receipt Date: 20180711
  Transmission Date: 20181010
  Serious: Yes (Death, Other)
  Sender: FDA-Public Use
  Company Number: TR-BAYER-2018-128394

PATIENT
  Age: 72 Year
  Sex: Male

DRUGS (2)
  1. CLOPIDOGREL [Suspect]
     Active Substance: CLOPIDOGREL BISULFATE
     Dosage: 75 MG, UNK
  2. ASA 100 MG [Suspect]
     Active Substance: ASPIRIN
     Dosage: 100 MG, QD

REACTIONS (7)
  - Mesenteric arterial occlusion [None]
  - Truncus coeliacus thrombosis [None]
  - Superior mesenteric artery syndrome [None]
  - Mesenteric artery thrombosis [None]
  - Coeliac artery occlusion [None]
  - Product use issue [Fatal]
  - Product use issue [None]
